FAERS Safety Report 8954267 (Version 3)
Quarter: 2013Q1

REPORT INFORMATION
  Report Type: Report from Study
  Country: AR (occurrence: AR)
  Receive Date: 20121207
  Receipt Date: 20130107
  Transmission Date: 20140127
  Serious: Yes (Hospitalization, Other)
  Sender: FDA-Public Use
  Company Number: PHHO2012AR017341

PATIENT
  Age: 17 Year
  Sex: Male
  Weight: 29 kg

DRUGS (4)
  1. ACZ885 [Suspect]
     Indication: JUVENILE IDIOPATHIC ARTHRITIS
     Dosage: 98 MG, UNK
     Route: 058
     Dates: end: 20121121
  2. METHOTREXATE [Concomitant]
     Indication: JUVENILE IDIOPATHIC ARTHRITIS
     Dosage: 15 MG, UNK
     Route: 058
     Dates: start: 20101020, end: 20101123
  3. IBUPROFEN [Concomitant]
     Indication: PYREXIA
     Dosage: 300 MG, UNK
     Route: 048
     Dates: start: 20121116
  4. METHYLPREDNISOLONE [Concomitant]
     Indication: JUVENILE IDIOPATHIC ARTHRITIS
     Dosage: 8 MG, UNK
     Route: 048
     Dates: start: 20121121, end: 20121129

REACTIONS (1)
  - Histiocytosis haematophagic [Recovering/Resolving]
